FAERS Safety Report 4365712-7 (Version None)
Quarter: 2004Q2

REPORT INFORMATION
  Report Type: 
  Country: None (occurrence: None)
  Receive Date: 20040526
  Receipt Date: 20040526
  Transmission Date: 20050107
  Serious: Yes (Life-Threatening, Hospitalization)
  Sender: FDA-Public Use
  Company Number: None

PATIENT
  Age: 69 Year
  Sex: Female
  Weight: 79.4 kg

DRUGS (8)
  1. OLANZAPINE [Suspect]
     Indication: BIPOLAR DISORDER
     Dosage: 20 MG QHS [PRIOR TO ARRIVAL]
     Dates: end: 20040511
  2. OLANZAPINE [Suspect]
     Indication: SCHIZOPHRENIA
     Dosage: 20 MG QHS [PRIOR TO ARRIVAL]
     Dates: end: 20040511
  3. RISPERIDONE [Suspect]
     Indication: BIPOLAR DISORDER
     Dosage: PTA
     Dates: end: 20040511
  4. RISPERIDONE [Suspect]
     Indication: SCHIZOPHRENIA
     Dosage: PTA
     Dates: end: 20040511
  5. CARABAMAZEPINE [Concomitant]
  6. TRAZODONE HCL [Concomitant]
  7. FLUCONAZOLE [Concomitant]
  8. UNASYN [Concomitant]

REACTIONS (4)
  - BLOOD PRESSURE DECREASED [None]
  - BODY TEMPERATURE DECREASED [None]
  - BRADYCARDIA [None]
  - DEPRESSED LEVEL OF CONSCIOUSNESS [None]
